FAERS Safety Report 24820478 (Version 2)
Quarter: 2025Q1

REPORT INFORMATION
  Report Type: Spontaneous
  Country: IR (occurrence: IR)
  Receive Date: 20250108
  Receipt Date: 20250122
  Transmission Date: 20250408
  Serious: No
  Sender: ASTELLAS
  Company Number: IR-ASTELLAS-2025-AER-000878

PATIENT
  Age: 63 Year
  Sex: Female

DRUGS (1)
  1. VESICARE [Suspect]
     Active Substance: SOLIFENACIN SUCCINATE
     Indication: Hypertonic bladder
     Dosage: ONE 5 MG TABLET EVERY 12 HOURS
     Route: 048
     Dates: start: 20241231

REACTIONS (4)
  - Dry skin [Recovered/Resolved]
  - Dry mouth [Recovered/Resolved]
  - Pruritus [Recovered/Resolved]
  - Off label use [Unknown]

NARRATIVE: CASE EVENT DATE: 20241231
